FAERS Safety Report 8528932-3 (Version None)
Quarter: 2012Q3

REPORT INFORMATION
  Report Type: 
  Country: None (occurrence: None)
  Receive Date: 20120716
  Receipt Date: 20120716
  Transmission Date: 20120928
  Serious: Yes (Other)
  Sender: FDA-Public Use
  Company Number: None

PATIENT
  Age: 41 Year
  Sex: Female
  Weight: 59 kg

DRUGS (1)
  1. HYDROGEN PEROXIDE SOLUTION [Suspect]
     Indication: DENTAL CARE
     Dosage: 7 VIALS, AS DIRECTED, TOPICAL
     Route: 061
     Dates: start: 20120313, end: 20120313

REACTIONS (5)
  - BLISTER [None]
  - CHEMICAL BURN OF GASTROINTESTINAL TRACT [None]
  - SALIVARY GLAND ENLARGEMENT [None]
  - PAIN [None]
  - APPLICATION SITE BURN [None]
